FAERS Safety Report 6219210-6 (Version None)
Quarter: 2009Q2

REPORT INFORMATION
  Report Type: 
  Country: None (occurrence: None)
  Receive Date: 20090609
  Receipt Date: 20090529
  Transmission Date: 20091009
  Serious: Yes (Hospitalization)
  Sender: FDA-Public Use
  Company Number: JP-BRISTOL-MYERS SQUIBB COMPANY-14532089

PATIENT
  Age: 53 Year
  Sex: Female
  Weight: 66 kg

DRUGS (4)
  1. ABILIFY [Suspect]
     Indication: SCHIZOPHRENIA
     Dosage: REDUCED TO 5MG/D, 4MG/D.
     Route: 048
     Dates: start: 20071025, end: 20071120
  2. RISPERIDONE [Concomitant]
     Dosage: TABLET FORM INCREASED FROM 4MG/D TO 6MG/D(21OCT04-ONG)8MG/D(26NOV07);LIQUID FORM 2MG/D (22NOV07-ON)
     Dates: start: 20041021
  3. PROMETHAZINE HCL [Concomitant]
     Dosage: TABLET FORM
     Dates: start: 20041021
  4. ACTOS [Concomitant]
     Dates: start: 20060119

REACTIONS (1)
  - PSYCHIATRIC SYMPTOM [None]
